FAERS Safety Report 16586570 (Version 2)
Quarter: 2019Q3

REPORT INFORMATION
  Report Type: Spontaneous
  Country: US (occurrence: US)
  Receive Date: 20190717
  Receipt Date: 20190821
  Transmission Date: 20191004
  Serious: No
  Sender: FDA-Public Use
  Company Number: US-ASTRAZENECA-2019SE90442

PATIENT
  Age: 20975 Day
  Sex: Male
  Weight: 117.9 kg

DRUGS (1)
  1. SYMBICORT [Suspect]
     Active Substance: BUDESONIDE\FORMOTEROL FUMARATE DIHYDRATE
     Indication: DYSPNOEA
     Dosage: 160/4.5 MCG, 2 INHALATIONS TWICE DAILY
     Route: 055
     Dates: start: 20190522

REACTIONS (6)
  - Intentional product misuse [Recovered/Resolved]
  - Dyspnoea [Unknown]
  - Product use in unapproved indication [Not Recovered/Not Resolved]
  - Visual acuity reduced [Unknown]
  - Off label use [Not Recovered/Not Resolved]
  - Device malfunction [Unknown]

NARRATIVE: CASE EVENT DATE: 20190522
